FAERS Safety Report 10023087 (Version 1)
Quarter: 2014Q1

REPORT INFORMATION
  Report Type: Spontaneous
  Country: US (occurrence: US)
  Receive Date: 20140319
  Receipt Date: 20140319
  Transmission Date: 20141002
  Serious: Yes (Other)
  Sender: FDA-Public Use
  Company Number: US-BRISTOL-MYERS SQUIBB COMPANY-20417895

PATIENT
  Age: 52 Year
  Sex: Female

DRUGS (7)
  1. ABILIFY TABS [Suspect]
     Indication: MAJOR DEPRESSION
     Dosage: DOSE TAPERED, INTERUPTED?ABILIFY 2 MG SAMPLE TABS:LOT NO.:3E77900B,EXP DATE: JUN15
  2. LISINOPRIL [Concomitant]
  3. TRICOR [Concomitant]
  4. CLONAZEPAM [Concomitant]
     Dosage: DOSAGE: AT NIGHT
  5. VYVANSE [Concomitant]
     Dosage: DOSAGE:Q.A.M
  6. MIRTAZAPINE [Concomitant]
  7. LITHIUM [Concomitant]

REACTIONS (6)
  - Psychotic disorder [Unknown]
  - Wrong technique in drug usage process [Unknown]
  - Glycosylated haemoglobin increased [Unknown]
  - Blood cholesterol increased [Unknown]
  - Blood triglycerides increased [Unknown]
  - Weight increased [Unknown]
